FAERS Safety Report 6936850-7 (Version None)
Quarter: 2010Q3

REPORT INFORMATION
  Report Type: 
  Country: None (occurrence: None)
  Receive Date: 20100818
  Receipt Date: 20100804
  Transmission Date: 20110219
  Serious: Yes (Other)
  Sender: FDA-Public Use
  Company Number: AVE_01930_2010

PATIENT
  Sex: Female

DRUGS (13)
  1. CLONIDINE [Suspect]
     Indication: HYPERTENSION
     Dosage: (0.3 MG QD, VIA 1/WEEKLY PATCH TRANSDERMAL)
     Route: 062
     Dates: start: 20100601, end: 20100101
  2. CLONIDINE [Suspect]
     Indication: HYPERTENSION
     Dosage: (0.3 MG QD, VIA 1/WEEKLY PATCH TRANSDERMAL)
     Route: 062
     Dates: start: 20100101
  3. LASIX [Concomitant]
  4. LOPRESSOR [Concomitant]
  5. NORVASC [Concomitant]
  6. WELCHOL [Concomitant]
  7. ASPIRIN [Concomitant]
  8. LEVOTHROID [Concomitant]
  9. TRICOR [Concomitant]
  10. HUMALOG [Concomitant]
  11. HUMULIN 70/30 [Concomitant]
  12. IMDUR [Concomitant]
  13. NITROGLYCERIN [Concomitant]

REACTIONS (3)
  - BLOOD PRESSURE INCREASED [None]
  - PRODUCT ADHESION ISSUE [None]
  - PRODUCT SUBSTITUTION ISSUE [None]
